FAERS Safety Report 13224010 (Version 1)
Quarter: 2017Q1

REPORT INFORMATION
  Report Type: Other
  Country: US (occurrence: US)
  Receive Date: 20170212
  Receipt Date: 20170212
  Transmission Date: 20170428
  Serious: Yes (Hospitalization, Other)
  Sender: FDA-Public Use
  Company Number: US-ACORDA-ACO_129704_2016

PATIENT
  Age: 54 Year
  Sex: Female
  Weight: 67.12 kg

DRUGS (1)
  1. AMPYRA [Suspect]
     Active Substance: DALFAMPRIDINE
     Indication: PRODUCT USED FOR UNKNOWN INDICATION
     Dosage: 10 MG, BID
     Route: 048

REACTIONS (7)
  - Concussion [Recovered/Resolved]
  - Road traffic accident [Recovered/Resolved]
  - Hypoaesthesia [Recovering/Resolving]
  - Paraesthesia [Recovering/Resolving]
  - Anxiety [Unknown]
  - Head injury [Recovered/Resolved]
  - Post-traumatic stress disorder [Unknown]
